FAERS Safety Report 10898644 (Version 1)
Quarter: 2015Q1

REPORT INFORMATION
  Report Type: Report from Study
  Country: US (occurrence: US)
  Receive Date: 20150309
  Receipt Date: 20150309
  Transmission Date: 20150721
  Serious: No
  Sender: FDA-Public Use
  Company Number: US-ABBVIE-14P-163-1251008-00

PATIENT
  Sex: Female
  Weight: 74.91 kg

DRUGS (1)
  1. LUPRON DEPOT [Suspect]
     Active Substance: LEUPROLIDE ACETATE
     Indication: UTERINE LEIOMYOMA
     Dates: start: 201405

REACTIONS (3)
  - Abdominal pain [Unknown]
  - Pain [Recovering/Resolving]
  - Muscle spasms [Unknown]
